FAERS Safety Report 6206295-6 (Version None)
Quarter: 2009Q2

REPORT INFORMATION
  Report Type: 
  Country: None (occurrence: None)
  Receive Date: 20090528
  Receipt Date: 20090525
  Transmission Date: 20091009
  Serious: Yes (Hospitalization)
  Sender: FDA-Public Use
  Company Number: NZ-ROCHE-626264

PATIENT
  Sex: Female
  Weight: 78 kg

DRUGS (6)
  1. XELODA [Suspect]
     Route: 048
     Dates: start: 20090220, end: 20090304
  2. LOSEC [Concomitant]
     Indication: GASTROOESOPHAGEAL REFLUX DISEASE
     Dosage: FREQUENCY REPORTED AS OD
     Route: 048
  3. LIPITOR [Concomitant]
     Dosage: FREQUENCY REPORTED AS OD
     Route: 048
  4. ASPIRIN [Concomitant]
     Dosage: DRUG NAME REPORTED AS ENTERIC COATED ASPIRIN. FREQUENCY: OD
     Route: 048
  5. DILTIAZEM [Concomitant]
     Indication: HYPERTENSION
     Dosage: DRUG NAME REPORTED AS DILTIAZEM SLOW RELEASE
     Route: 048
     Dates: end: 20090304
  6. CANDESARTAN [Concomitant]
     Indication: HYPERTENSION
     Route: 048
     Dates: end: 20090304

REACTIONS (2)
  - DIARRHOEA [None]
  - INTESTINAL OBSTRUCTION [None]
